FAERS Safety Report 4372717-9 (Version None)
Quarter: 2004Q2

REPORT INFORMATION
  Report Type: 
  Country: None (occurrence: None)
  Receive Date: 20040602
  Receipt Date: 20040414
  Transmission Date: 20050107
  Serious: No
  Sender: FDA-Public Use
  Company Number: 200417611BWH

PATIENT
  Age: 81 Year
  Sex: Male
  Weight: 83.9154 kg

DRUGS (6)
  1. LEVITRA [Suspect]
     Indication: ERECTILE DYSFUNCTION
     Dosage: SEE IMAGE
     Route: 048
  2. THEO-DUR [Concomitant]
  3. COMBIVENT [Concomitant]
  4. AEROBID [Concomitant]
  5. FORADIL [Concomitant]
  6. VIAGRA [Concomitant]

REACTIONS (1)
  - ERECTILE DYSFUNCTION [None]
